FAERS Safety Report 6750583-1 (Version None)
Quarter: 2010Q2

REPORT INFORMATION
  Report Type: 
  Country: None (occurrence: None)
  Receive Date: 20100601
  Receipt Date: 20100518
  Transmission Date: 20101027
  Serious: Yes (Hospitalization)
  Sender: FDA-Public Use
  Company Number: DE-MYLANLABS-2010S1008826

PATIENT
  Age: 30 Year
  Sex: Female
  Weight: 86 kg

DRUGS (4)
  1. VALPROATE SODIUM [Suspect]
     Indication: EPILEPSY
     Route: 048
     Dates: start: 19990101
  2. KEPPRA [Concomitant]
     Indication: EPILEPSY
     Route: 048
     Dates: start: 20080101
  3. VESICARE [Concomitant]
     Indication: INCONTINENCE
     Route: 048
  4. DULOXETINE HYDROCHLORIDE [Concomitant]
     Indication: INCONTINENCE
     Route: 048

REACTIONS (1)
  - HIRSUTISM [None]
